FAERS Safety Report 6615118-2 (Version None)
Quarter: 2010Q1

REPORT INFORMATION
  Report Type: 
  Country: None (occurrence: None)
  Receive Date: 20100305
  Receipt Date: 20100302
  Transmission Date: 20100710
  Serious: Yes (Hospitalization, Other)
  Sender: FDA-Public Use
  Company Number: US-BRISTOL-MYERS SQUIBB COMPANY-14984967

PATIENT
  Age: 78 Year
  Sex: Female

DRUGS (22)
  1. IXABEPILONE [Suspect]
     Indication: ENDOMETRIAL CANCER
     Dosage: INTERRUPTED ON 23DEC2009 AFTER 2 CYCLES AT 65MG + RESTARTED ON 21JAN10:55MG FOR 2 CYCLES.
     Route: 042
     Dates: start: 20091022
  2. COLESTID [Concomitant]
     Route: 048
  3. ALLOPURINOL [Concomitant]
     Route: 048
  4. TENORMIN [Concomitant]
     Route: 048
  5. FLONASE [Concomitant]
     Dosage: 2 DF-2 SPRAY
     Route: 055
  6. SENOKOT [Concomitant]
     Dosage: 1 DF-1-2 TABS
     Route: 048
  7. MIRALAX [Concomitant]
     Dosage: 1 DF-1 PKT 17GM/PKT
     Route: 048
  8. K-DUR [Concomitant]
     Route: 048
  9. MAGNESIUM OXIDE [Concomitant]
     Route: 048
  10. LORA TAB [Concomitant]
     Dosage: 7.5MG 1-2 TABS EVERY 4-6 HRS
  11. IMODIUM [Concomitant]
     Dosage: EVERY 6 HRS
     Route: 048
  12. CIPRO [Concomitant]
     Route: 048
  13. FLAGYL [Concomitant]
     Route: 048
  14. ZOFRAN [Concomitant]
     Dosage: Q4H ZOFRAN 4MG/2ML
     Route: 042
     Dates: start: 20100217, end: 20100227
  15. COMPAZINE [Concomitant]
     Dosage: COMPAZINE 10MG/2ML VIAL Q6H
     Route: 042
     Dates: start: 20100217, end: 20100227
  16. SODIUM CHLORIDE [Concomitant]
     Dosage: SODIUM CHLORIDE 0.9% 1000 ML BAG VOLUME 1000  RATE 10ML/HR.DURA:24HR
     Dates: start: 20100217, end: 20100227
  17. MORPHINE SULFATE [Concomitant]
     Dosage: MORPHINE SULFATE 4MG/1ML SYR
     Route: 042
     Dates: start: 20100217, end: 20100227
  18. LOPRESSOR [Concomitant]
     Dosage: LOPRESSOR 1MG/ML AMP
     Route: 042
     Dates: start: 20100217, end: 20100227
  19. LASIX [Concomitant]
     Route: 042
     Dates: start: 20100217, end: 20100227
  20. VANCOMYCIN [Concomitant]
     Route: 042
     Dates: start: 20100217, end: 20100226
  21. IMODIUM [Concomitant]
  22. MAGNESIUM SULFATE [Concomitant]
     Dosage: ON 7JAN10,19FEB10,20FEB10
     Dates: start: 20100107, end: 20100220

REACTIONS (1)
  - INTESTINAL PERFORATION [None]
